FAERS Safety Report 15142985 (Version 1)
Quarter: 2018Q3

REPORT INFORMATION
  Report Type: Spontaneous
  Country: US (occurrence: US)
  Receive Date: 20180618
  Receipt Date: 20180618
  Transmission Date: 20181010
  Serious: No
  Sender: FDA-Public Use
  Company Number: None

PATIENT
  Age: 49 Year
  Sex: Female

DRUGS (1)
  1. LUPRON [Suspect]
     Active Substance: LEUPROLIDE ACETATE
     Dosage: 11.25MG EVERY 3 MONTHS INTRAMUSCULARLY?          ?
     Route: 030
     Dates: start: 20170929

REACTIONS (3)
  - Mouth haemorrhage [None]
  - Gingival bleeding [None]
  - Haematochezia [None]

NARRATIVE: CASE EVENT DATE: 20171001
